FAERS Safety Report 9333136 (Version 1)
Quarter: 2013Q2

REPORT INFORMATION
  Report Type: Spontaneous
  Country: US (occurrence: None)
  Receive Date: 20130604
  Receipt Date: 20130604
  Transmission Date: 20140414
  Serious: Yes (Death, Hospitalization)
  Sender: FDA-Public Use
  Company Number: AUR-APL-2009-00986

PATIENT
  Age: 34 Year
  Sex: Male

DRUGS (1)
  1. CEFAZOLIN (CEFAZOLIN) [Suspect]
     Indication: PROPHYLAXIS
     Route: 042

REACTIONS (12)
  - Anaphylactic reaction [None]
  - Convulsion [None]
  - Respiratory arrest [None]
  - Pulmonary oedema [None]
  - Pneumoconiosis [None]
  - Pulmonary haemorrhage [None]
  - Brain oedema [None]
  - Drug level decreased [None]
  - Infusion related reaction [None]
  - Arteriosclerosis coronary artery [None]
  - Glomerulosclerosis [None]
  - Kidney fibrosis [None]
